FAERS Safety Report 13742570 (Version 1)
Quarter: 2017Q3

REPORT INFORMATION
  Report Type: Spontaneous
  Country: GB (occurrence: GB)
  Receive Date: 20170711
  Receipt Date: 20170711
  Transmission Date: 20171127
  Serious: Yes (Hospitalization)
  Sender: FDA-Public Use
  Company Number: GB-ELI_LILLY_AND_COMPANY-GB201707001342

PATIENT
  Age: 17 Year
  Sex: Male

DRUGS (2)
  1. PROZAC [Suspect]
     Active Substance: FLUOXETINE HYDROCHLORIDE
     Indication: PSYCHOTIC DISORDER
     Dosage: 20 MG, UNKNOWN
     Route: 065
     Dates: start: 201607
  2. PROZAC [Suspect]
     Active Substance: FLUOXETINE HYDROCHLORIDE
     Dosage: 40 MG, UNKNOWN
     Route: 065

REACTIONS (2)
  - Psychotic disorder [Unknown]
  - Off label use [Unknown]

NARRATIVE: CASE EVENT DATE: 201607
